FAERS Safety Report 6560183-4 (Version None)
Quarter: 2010Q1

REPORT INFORMATION
  Report Type: 
  Country: None (occurrence: None)
  Receive Date: 20100129
  Receipt Date: 20050114
  Transmission Date: 20100710
  Serious: No
  Sender: FDA-Public Use
  Company Number: US-ALLERGAN-200500669

PATIENT
  Age: 20 Year
  Sex: Female

DRUGS (2)
  1. BOTOX [Suspect]
     Indication: HYPERHIDROSIS
     Dosage: 50UNITS, SINGLE
     Route: 030
     Dates: start: 20041220, end: 20041220
  2. BOTOX [Suspect]
     Dosage: 50UNITS, SINGLE
     Route: 030
     Dates: start: 20050103, end: 20050103

REACTIONS (3)
  - DRUG INEFFECTIVE [None]
  - MUSCULAR WEAKNESS [None]
  - SENSORY DISTURBANCE [None]
